FAERS Safety Report 5034199-3 (Version None)
Quarter: 2006Q2

REPORT INFORMATION
  Report Type: 
  Country: None (occurrence: None)
  Receive Date: 20060626
  Receipt Date: 20060315
  Transmission Date: 20061013
  Serious: Yes (Death)
  Sender: FDA-Public Use
  Company Number: FR-GLAXOSMITHKLINE-B0416013A

PATIENT
  Age: 31 Year
  Sex: Male

DRUGS (1)
  1. ZYBAN [Suspect]
     Dosage: 150MG VARIABLE DOSE
     Route: 048
     Dates: start: 20060203, end: 20060218

REACTIONS (4)
  - COMPLETED SUICIDE [None]
  - DRY MOUTH [None]
  - HEADACHE [None]
  - INSOMNIA [None]
